FAERS Safety Report 4662174-7 (Version None)
Quarter: 2005Q2

REPORT INFORMATION
  Report Type: 
  Country: None (occurrence: None)
  Receive Date: 20050512
  Receipt Date: 20050426
  Transmission Date: 20051028
  Serious: Yes (Hospitalization, Other)
  Sender: FDA-Public Use
  Company Number: USA050496780

PATIENT
  Sex: Female

DRUGS (1)
  1. FORTEO [Suspect]
     Dates: start: 20050301, end: 20050301

REACTIONS (4)
  - BACK PAIN [None]
  - BLOOD CALCIUM INCREASED [None]
  - BONE DISORDER [None]
  - MULTIPLE MYELOMA [None]
